FAERS Safety Report 24766994 (Version 1)
Quarter: 2024Q4

REPORT INFORMATION
  Report Type: Spontaneous
  Country: US (occurrence: US)
  Receive Date: 20241223
  Receipt Date: 20241223
  Transmission Date: 20250114
  Serious: No
  Sender: SANOFI AVENTIS
  Company Number: US-SA-2024SA376968

PATIENT
  Age: 55 Year
  Sex: Male
  Weight: 98.18 kg

DRUGS (1)
  1. DUPIXENT [Suspect]
     Active Substance: DUPILUMAB
     Indication: Illness
     Dosage: 600 MG, 1X
     Route: 058

REACTIONS (1)
  - Rash [Unknown]

NARRATIVE: CASE EVENT DATE: 20241201
